FAERS Safety Report 18456496 (Version 1)
Quarter: 2020Q4

REPORT INFORMATION
  Report Type: Spontaneous
  Country: US (occurrence: US)
  Receive Date: 20201103
  Receipt Date: 20201103
  Transmission Date: 20210114
  Serious: No
  Sender: FDA-Public Use
  Company Number: US-UNITED THERAPEUTICS-UNT-2020-016853

PATIENT
  Age: 50 Year
  Sex: Female
  Weight: 62.59 kg

DRUGS (2)
  1. REMODULIN [Suspect]
     Active Substance: TREPROSTINIL
     Indication: PULMONARY ARTERIAL HYPERTENSION
     Dosage: UNK, CONTINUING
     Route: 041
     Dates: start: 20201013
  2. REMODULIN [Suspect]
     Active Substance: TREPROSTINIL
     Dosage: 0.10 ?G/KG, CONTINUING
     Route: 041
     Dates: start: 202010

REACTIONS (2)
  - Anxiety [Unknown]
  - Device issue [Unknown]

NARRATIVE: CASE EVENT DATE: 202010
